FAERS Safety Report 13828892 (Version 1)
Quarter: 2017Q3

REPORT INFORMATION
  Report Type: Spontaneous
  Country: US (occurrence: US)
  Receive Date: 20170802
  Receipt Date: 20170802
  Transmission Date: 20171127
  Serious: Yes (Disabling)
  Sender: FDA-Public Use
  Company Number: None

PATIENT
  Sex: Female

DRUGS (2)
  1. ESTRADIOL TRANSDERMAL SYSTEM [Suspect]
     Active Substance: ESTRADIOL
     Indication: MENOPAUSE
     Dosage: QUANTITY:2 PATCH(ES);OTHER FREQUENCY:WEEKLY;?
     Route: 061
  2. ESTRADIOL TRANSDERMAL SYSTEM [Suspect]
     Active Substance: ESTRADIOL
     Indication: HOT FLUSH
     Dosage: QUANTITY:2 PATCH(ES);OTHER FREQUENCY:WEEKLY;?
     Route: 061

REACTIONS (6)
  - Headache [None]
  - Pain [None]
  - Lactation disorder [None]
  - Emotional disorder [None]
  - Crying [None]
  - Tenderness [None]

NARRATIVE: CASE EVENT DATE: 20170731
